FAERS Safety Report 22172881 (Version 3)
Quarter: 2024Q2

REPORT INFORMATION
  Report Type: Report from Study
  Country: BR (occurrence: BR)
  Receive Date: 20230404
  Receipt Date: 20240624
  Transmission Date: 20240716
  Serious: Yes (Other)
  Sender: FDA-Public Use
  Company Number: BR-TAKEDA-2022TUS100386

PATIENT
  Age: 72 Year
  Sex: Female

DRUGS (1)
  1. VEDOLIZUMAB [Suspect]
     Active Substance: VEDOLIZUMAB
     Indication: Crohn^s disease
     Dosage: 300 MILLIGRAM
     Route: 042
     Dates: start: 20210714

REACTIONS (5)
  - Femur fracture [Unknown]
  - Fall [Unknown]
  - COVID-19 [Unknown]
  - Hypoacusis [Unknown]
  - Product availability issue [Unknown]

NARRATIVE: CASE EVENT DATE: 20221219
